FAERS Safety Report 13656788 (Version 1)
Quarter: 2017Q2

REPORT INFORMATION
  Report Type: Spontaneous
  Country: AU (occurrence: AU)
  Receive Date: 20170615
  Receipt Date: 20170615
  Transmission Date: 20170830
  Serious: No
  Sender: FDA-Public Use
  Company Number: AU-ALLERGAN-1702435US

PATIENT
  Sex: Female

DRUGS (2)
  1. STELAX [Concomitant]
     Indication: MULTIPLE SCLEROSIS
     Dosage: 10 MG, BID
     Dates: start: 2016, end: 2016
  2. OXYTROL [Suspect]
     Active Substance: OXYBUTYNIN
     Indication: BLADDER DISORDER
     Dosage: 1 PATCH TWICE WEEKLY
     Route: 062
     Dates: start: 20160101, end: 2016

REACTIONS (4)
  - Constipation [Unknown]
  - Rash [Unknown]
  - Dehydration [Unknown]
  - Dry eye [Unknown]
